FAERS Safety Report 7580290-7 (Version None)
Quarter: 2011Q2

REPORT INFORMATION
  Report Type: 
  Country: None (occurrence: None)
  Receive Date: 20110629
  Receipt Date: 20110627
  Transmission Date: 20111010
  Serious: No
  Sender: FDA-Public Use
  Company Number: US-TEVA-288218USA

PATIENT
  Sex: Male
  Weight: 74.91 kg

DRUGS (4)
  1. TIOTROPIUM BROMIDE [Concomitant]
  2. ALBUTEROL [Concomitant]
     Dosage: NEBULIZER
  3. THEOPHYLLINE [Concomitant]
  4. PROAIR HFA [Suspect]
     Indication: CHRONIC OBSTRUCTIVE PULMONARY DISEASE
     Dosage: 360 MICROGRAM; 2 PUFFS
     Route: 055
     Dates: start: 20110613

REACTIONS (4)
  - FLATULENCE [None]
  - ABDOMINAL PAIN [None]
  - ABDOMINAL DISTENSION [None]
  - ERUCTATION [None]
